FAERS Safety Report 9767605 (Version 2)
Quarter: 2013Q4

REPORT INFORMATION
  Report Type: Spontaneous
  Country: KR (occurrence: KR)
  Receive Date: 20131217
  Receipt Date: 20131223
  Transmission Date: 20140711
  Serious: Yes (Death, Hospitalization)
  Sender: FDA-Public Use
  Company Number: KR-PFIZER INC-2013356286

PATIENT
  Age: 85 Year
  Sex: Female

DRUGS (3)
  1. DOXYCYCLINE HYCLATE [Suspect]
     Indication: SCRUB TYPHUS
     Dosage: 200 MG, UNK
     Route: 048
  2. PIPERACILLIN/TAZOBACTAM [Suspect]
     Indication: SCRUB TYPHUS
     Dosage: 2.25 MG, 4X/DAY
     Route: 042
  3. LEVOFLOXACIN [Suspect]
     Indication: SCRUB TYPHUS
     Dosage: 750 MG, 1X/DAY
     Route: 042

REACTIONS (3)
  - Drug ineffective [Fatal]
  - Myocarditis [Fatal]
  - Renal failure acute [Fatal]
